FAERS Safety Report 5638896-8 (Version None)
Quarter: 2008Q1

REPORT INFORMATION
  Report Type: 
  Country: None (occurrence: None)
  Receive Date: 20080226
  Receipt Date: 20080215
  Transmission Date: 20080703
  Serious: Yes (Other)
  Sender: FDA-Public Use
  Company Number: JP-ROCHE-547081

PATIENT
  Age: 6 Year
  Sex: Male
  Weight: 20 kg

DRUGS (8)
  1. TAMIFLU [Suspect]
     Dosage: DRUG REPORTED AS TAMIFLU DRY SYRUP 3 %
     Route: 048
     Dates: start: 20080206, end: 20080206
  2. TAMIFLU [Suspect]
     Route: 048
     Dates: start: 20080207, end: 20080207
  3. TAMIFLU [Suspect]
     Route: 048
     Dates: start: 20080208
  4. MUCODYNE [Concomitant]
     Route: 048
  5. ASVERIN [Concomitant]
     Route: 048
     Dates: start: 20080206
  6. TELGIN G [Concomitant]
     Route: 048
     Dates: start: 20080206
  7. HOKUNALIN [Concomitant]
     Route: 048
     Dates: start: 20080206
  8. MUCOSAL [Concomitant]
     Route: 048
     Dates: start: 20080206

REACTIONS (1)
  - ABNORMAL BEHAVIOUR [None]
